FAERS Safety Report 10688024 (Version 1)
Quarter: 2015Q1

REPORT INFORMATION
  Report Type: Spontaneous
  Country: US (occurrence: US)
  Receive Date: 20150102
  Receipt Date: 20150102
  Transmission Date: 20150720
  Serious: Yes (Life-Threatening, Other)
  Sender: FDA-Public Use
  Company Number: US-BAYER-2014-190687

PATIENT

DRUGS (3)
  1. BAYER GENUINE ASPIRIN [Suspect]
     Active Substance: ASPIRIN
     Dosage: UNK, UNK
  2. ALEVE [Suspect]
     Active Substance: NAPROXEN SODIUM
     Dosage: UNK, UNK
  3. IBUPROFEN. [Suspect]
     Active Substance: IBUPROFEN

REACTIONS (7)
  - Cardiac operation [None]
  - Adverse drug reaction [Unknown]
  - Nephropathy [Unknown]
  - Hypertension [None]
  - Gastric ulcer [None]
  - Hypovitaminosis [Unknown]
  - Cardiac valve disease [Unknown]

NARRATIVE: CASE EVENT DATE: 2013
